FAERS Safety Report 19881482 (Version 6)
Quarter: 2022Q2

REPORT INFORMATION
  Report Type: Report from Study
  Country: JP (occurrence: None)
  Receive Date: 20210924
  Receipt Date: 20220627
  Transmission Date: 20220721
  Serious: Yes (Hospitalization)
  Sender: FDA-Public Use
  Company Number: JP-ROCHE-2909070

PATIENT
  Age: 76 Year
  Sex: Male
  Weight: 51.5 kg

DRUGS (14)
  1. TIRAGOLUMAB [Suspect]
     Active Substance: TIRAGOLUMAB
     Indication: Oesophageal squamous cell carcinoma
     Dosage: DATE OF MOST RECENT DOSE 600 MG OF STUDY DRUG PRIOR TO AE/SAE: 02/SEP/2021
     Route: 042
     Dates: start: 20210811
  2. ATEZOLIZUMAB [Suspect]
     Active Substance: ATEZOLIZUMAB
     Indication: Oesophageal squamous cell carcinoma
     Dosage: START DATE OF MOST RECENT DOSE 1200 MG OF STUDY PRIOR TO AE/SAE: 02/SEP/2021
     Route: 042
     Dates: start: 20210811
  3. SODIUM GUALENATE MONOHYDRATE [Concomitant]
     Active Substance: SODIUM GUALENATE MONOHYDRATE
     Dates: start: 20210423
  4. TRAMADOL HYDROCHLORIDE [Concomitant]
     Active Substance: TRAMADOL HYDROCHLORIDE
     Indication: Tumour pain
     Dates: start: 20210709
  5. REBAMIPIDE [Concomitant]
     Active Substance: REBAMIPIDE
     Dates: start: 20210709
  6. ALLOID G [Concomitant]
     Active Substance: SODIUM ALGINATE
     Route: 048
     Dates: start: 20210810
  7. HEPARINOID [Concomitant]
     Indication: Decubitus ulcer
     Dates: start: 20210810
  8. AZUNOL [Concomitant]
     Indication: Decubitus ulcer
     Dates: start: 20210810
  9. MAGNESIUM OXIDE [Concomitant]
     Active Substance: MAGNESIUM OXIDE
     Dates: start: 20210709
  10. LOXOPROFEN SODIUM DIHYDRATE [Concomitant]
     Active Substance: LOXOPROFEN SODIUM DIHYDRATE
     Indication: Tumour pain
     Dates: start: 20210709
  11. VONOPRAZAN FUMARATE [Concomitant]
     Active Substance: VONOPRAZAN FUMARATE
     Dates: start: 20210709
  12. PRIMPERAN [Concomitant]
     Active Substance: METOCLOPRAMIDE HYDROCHLORIDE
     Indication: Nausea
     Dates: start: 20210907
  13. KETOPROFEN [Concomitant]
     Active Substance: KETOPROFEN
     Indication: Neck pain
     Dates: start: 20210911
  14. SENNOSIDES [Concomitant]
     Active Substance: SENNOSIDES
     Dates: start: 20210912, end: 20210913

REACTIONS (1)
  - Seizure [Recovered/Resolved]

NARRATIVE: CASE EVENT DATE: 20210907
